FAERS Safety Report 4636042-0 (Version None)
Quarter: 2005Q2

REPORT INFORMATION
  Report Type: 
  Country: None (occurrence: None)
  Receive Date: 20050331
  Receipt Date: 20040204
  Transmission Date: 20051028
  Serious: Yes (Other)
  Sender: FDA-Public Use
  Company Number: 200410592BCC

PATIENT
  Age: 74 Year
  Sex: Female
  Weight: 52.1637 kg

DRUGS (5)
  1. ALEVE (CAPLET) [Suspect]
     Indication: BACK PAIN
     Dosage: SEE IMAGE
     Route: 048
     Dates: start: 20031215
  2. ALEVE (CAPLET) [Suspect]
     Indication: BACK PAIN
     Dosage: SEE IMAGE
     Route: 048
     Dates: start: 20040203
  3. ATENOLOL [Concomitant]
  4. PREVACID [Concomitant]
  5. ASCORBIC ACID [Concomitant]

REACTIONS (12)
  - DIZZINESS [None]
  - ERYTHEMA [None]
  - FALL [None]
  - HYPERSENSITIVITY [None]
  - LOSS OF CONSCIOUSNESS [None]
  - NAUSEA [None]
  - PALMAR ERYTHEMA [None]
  - PARAESTHESIA [None]
  - PRURITUS [None]
  - PRURITUS GENERALISED [None]
  - RASH MACULAR [None]
  - URTICARIA [None]
